FAERS Safety Report 21712142 (Version 1)
Quarter: 2022Q4

REPORT INFORMATION
  Report Type: Spontaneous
  Country: US (occurrence: US)
  Receive Date: 20221212
  Receipt Date: 20221212
  Transmission Date: 20230112
  Serious: No
  Sender: FDA-Public Use
  Company Number: US-ORG100016242-2021000688

PATIENT
  Sex: Female

DRUGS (2)
  1. EXPAREL [Suspect]
     Active Substance: BUPIVACAINE
     Indication: Gallbladder operation
     Dosage: NOT PROVIDED
     Route: 065
  2. MARCAINE [Suspect]
     Active Substance: BUPIVACAINE HYDROCHLORIDE
     Indication: Gallbladder operation
     Dosage: NOT PROVIDED
     Route: 065

REACTIONS (2)
  - Rash vesicular [Recovered/Resolved]
  - Pruritus [Recovered/Resolved]
